FAERS Safety Report 8961060 (Version 1)
Quarter: 2012Q4

REPORT INFORMATION
  Report Type: 
  Country: NL (occurrence: NL)
  Receive Date: 20121212
  Receipt Date: 20121212
  Transmission Date: 20130627
  Serious: Yes (Hospitalization)
  Sender: FDA-Public Use
  Company Number: NL-PFIZER INC-2012308492

PATIENT
  Age: 61 Year
  Sex: Male
  Weight: 75 kg

DRUGS (11)
  1. GENOTROPIN [Suspect]
     Indication: GROWTH HORMONE DEFICIENCY
     Dosage: 0.25 mg, 1x/day, 7 injections/week
     Route: 058
     Dates: start: 20040101
  2. RENITEC [Concomitant]
     Dosage: UNK
     Dates: start: 19970401
  3. LASIX [Concomitant]
     Dosage: UNK
     Dates: start: 19970402
  4. PANTOZOL [Concomitant]
     Dosage: UNK
     Dates: start: 20020808
  5. THYRAX [Concomitant]
     Indication: TSH DECREASED
     Dosage: UNK
     Dates: start: 20040213
  6. THYRAX [Concomitant]
     Indication: PRIMARY HYPOTHYROIDISM
  7. HYDROCORTISONE [Concomitant]
     Indication: ADRENAL INSUFFICIENCY
     Dosage: UNK
     Dates: start: 20040213
  8. SELOKEEN [Concomitant]
     Dosage: UNK
     Dates: start: 20060522
  9. TRIAMTEREEN [Concomitant]
     Dosage: UNK
     Dates: start: 20060522
  10. TAMBOCOR [Concomitant]
     Dosage: UNK
     Dates: start: 20091212
  11. ENALAPRIL [Concomitant]
     Dosage: UNK
     Dates: start: 20100104

REACTIONS (1)
  - Arrhythmia [Unknown]
